FAERS Safety Report 21347424 (Version 1)
Quarter: 2022Q3

REPORT INFORMATION
  Report Type: Spontaneous
  Country: US (occurrence: US)
  Receive Date: 20220919
  Receipt Date: 20220919
  Transmission Date: 20221027
  Serious: No
  Sender: FDA-Public Use
  Company Number: US-SA-SAC20220913000096

PATIENT

DRUGS (1)
  1. DUPILUMAB [Suspect]
     Active Substance: DUPILUMAB
     Indication: Eosinophilic oesophagitis
     Dosage: 300 MG
     Route: 058

REACTIONS (10)
  - Lymph node pain [Unknown]
  - Lymphadenopathy [Unknown]
  - Tonsillar hypertrophy [Unknown]
  - Stomatitis [Unknown]
  - Dyspnoea [Unknown]
  - Fatigue [Unknown]
  - Oropharyngeal pain [Unknown]
  - Injection site erythema [Unknown]
  - Injection site pain [Unknown]
  - Dry eye [Unknown]
